FAERS Safety Report 10467531 (Version 3)
Quarter: 2015Q4

REPORT INFORMATION
  Report Type: Report from Study
  Country: US (occurrence: US)
  Receive Date: 20140922
  Receipt Date: 20151029
  Transmission Date: 20160304
  Serious: Yes (Other)
  Sender: FDA-Public Use
  Company Number: US-SA-2014SA111969

PATIENT
  Age: 47 Year
  Sex: Female

DRUGS (2)
  1. REBIF [Concomitant]
     Active Substance: INTERFERON BETA-1A
     Dates: start: 20110901, end: 20140606
  2. AUBAGIO [Suspect]
     Active Substance: TERIFLUNOMIDE
     Indication: MULTIPLE SCLEROSIS
     Route: 048
     Dates: start: 20140625, end: 20140904

REACTIONS (7)
  - Rash [Recovering/Resolving]
  - Skin disorder [Recovering/Resolving]
  - Burning sensation [Unknown]
  - Scar [Recovering/Resolving]
  - Erythema [Recovering/Resolving]
  - Photosensitivity reaction [Recovering/Resolving]
  - Pruritus [Recovering/Resolving]
